FAERS Safety Report 11431131 (Version 4)
Quarter: 2015Q4

REPORT INFORMATION
  Report Type: Report from Study
  Country: CA (occurrence: CA)
  Receive Date: 20150828
  Receipt Date: 20151224
  Transmission Date: 20160304
  Serious: Yes (Other)
  Sender: FDA-Public Use
  Company Number: PHHY2014CA151117

PATIENT
  Age: 41 Year
  Sex: Female

DRUGS (1)
  1. SANDOSTATIN LAR DEPOT [Suspect]
     Active Substance: OCTREOTIDE ACETATE
     Indication: ACROMEGALY
     Dosage: 20 MG, QMO (ONCE A MONTH)
     Route: 030
     Dates: start: 20141022

REACTIONS (24)
  - Muscle spasms [Unknown]
  - Gingival pain [Unknown]
  - Insulin-like growth factor decreased [Unknown]
  - Abdominal pain [Unknown]
  - Menstrual disorder [Unknown]
  - Blood pressure systolic increased [Unknown]
  - Abdominal distension [Unknown]
  - Asthenia [Unknown]
  - Hypoglycaemia [Unknown]
  - Dizziness [Unknown]
  - Syncope [Unknown]
  - Crying [Unknown]
  - Tongue discolouration [Unknown]
  - Flatulence [Unknown]
  - Depression [Unknown]
  - Paraesthesia [Unknown]
  - Haemangioma [Unknown]
  - Injection site pain [Unknown]
  - Benign neoplasm of adrenal gland [Unknown]
  - Tremor [Unknown]
  - Dysgeusia [Unknown]
  - Concomitant disease progression [Unknown]
  - Diarrhoea [Unknown]
  - Constipation [Unknown]

NARRATIVE: CASE EVENT DATE: 20141022
